FAERS Safety Report 25252949 (Version 1)
Quarter: 2025Q2

REPORT INFORMATION
  Report Type: Spontaneous
  Country: FR (occurrence: FR)
  Receive Date: 20250430
  Receipt Date: 20250430
  Transmission Date: 20250716
  Serious: Yes (Hospitalization, Other)
  Sender: CHEPLAPHARM
  Company Number: None

PATIENT
  Age: 30 Year
  Sex: Female

DRUGS (10)
  1. QUETIAPINE [Suspect]
     Active Substance: QUETIAPINE
  2. COCAINE [Suspect]
     Active Substance: COCAINE
  3. COCAETHYLENE [Suspect]
     Active Substance: COCAETHYLENE
  4. CANNABIS SATIVA SUBSP. INDICA TOP [Suspect]
     Active Substance: CANNABIS SATIVA SUBSP. INDICA TOP
  5. VALIUM [Suspect]
     Active Substance: DIAZEPAM
  6. CYAMEMAZINE [Suspect]
     Active Substance: CYAMEMAZINE
  7. CLOBAZAM [Suspect]
     Active Substance: CLOBAZAM
  8. OXAZEPAM [Suspect]
     Active Substance: OXAZEPAM
  9. DIAZEPAM\SULPIRIDE [Suspect]
     Active Substance: DIAZEPAM\SULPIRIDE
  10. TRIMEPRAZINE [Suspect]
     Active Substance: TRIMEPRAZINE

REACTIONS (4)
  - Chest pain [Recovered/Resolved]
  - Suicidal ideation [Recovered/Resolved]
  - Drug use disorder [Unknown]
  - Negative thoughts [Unknown]

NARRATIVE: CASE EVENT DATE: 20250304
